FAERS Safety Report 11846635 (Version 1)
Quarter: 2015Q4

REPORT INFORMATION
  Report Type: Spontaneous
  Country: US (occurrence: US)
  Receive Date: 20151217
  Receipt Date: 20151217
  Transmission Date: 20160305
  Serious: No
  Sender: FDA-Public Use
  Company Number: US-ROCHE-1528021

PATIENT
  Age: 14 Year
  Sex: Female

DRUGS (3)
  1. TAMIFLU [Suspect]
     Active Substance: OSELTAMIVIR PHOSPHATE
     Indication: ANTIVIRAL PROPHYLAXIS
     Dosage: TWO DOSES IN THE MORNING AND TWO DOSES IN THE EVENING
     Route: 048
     Dates: start: 20150125, end: 20150127
  2. SERTRALINE HYDROCHLORIDE. [Concomitant]
     Active Substance: SERTRALINE HYDROCHLORIDE
     Indication: ANXIETY
  3. METHYLPHENIDATE. [Concomitant]
     Active Substance: METHYLPHENIDATE
     Indication: ANXIETY

REACTIONS (2)
  - Affective disorder [Unknown]
  - Depression [Unknown]

NARRATIVE: CASE EVENT DATE: 20150126
